FAERS Safety Report 17798786 (Version 1)
Quarter: 2020Q2

REPORT INFORMATION
  Report Type: Spontaneous
  Country: US (occurrence: US)
  Receive Date: 20200518
  Receipt Date: 20200518
  Transmission Date: 20200714
  Serious: Yes (Death)
  Sender: FDA-Public Use
  Company Number: None

PATIENT
  Age: 49 Year
  Sex: Male

DRUGS (10)
  1. HYDROMORPHONE TAB 40 MG [Concomitant]
  2. BUMETANIDE TAB 2 MG [Concomitant]
  3. MORPHINE SUL TAB 15 MG ER [Concomitant]
  4. POT CHLORIDE TAB 20 MEQ ER [Concomitant]
  5. ESCITALOPRAM TAB 20 MG [Concomitant]
     Active Substance: ESCITALOPRAM OXALATE
  6. DOXYCYCLINE MONO CAP 100 MG [Concomitant]
  7. METOPROLOL SUC TAB 50 MG ER [Concomitant]
  8. METOLAZONE TAB 2.5 MG [Concomitant]
  9. CLINDAMYCIN CAP 300 MG [Concomitant]
  10. TADALAFIL. [Suspect]
     Active Substance: TADALAFIL
     Indication: HYPERTENSION
     Route: 048
     Dates: start: 20190621, end: 20200514

REACTIONS (1)
  - Death [None]

NARRATIVE: CASE EVENT DATE: 19700914
